FAERS Safety Report 10421722 (Version 1)
Quarter: 2014Q3

REPORT INFORMATION
  Report Type: Spontaneous
  Country: US (occurrence: US)
  Receive Date: 20140901
  Receipt Date: 20140901
  Transmission Date: 20150326
  Serious: No
  Sender: FDA-Public Use
  Company Number: US-BIOGENIDEC-2014BI086640

PATIENT
  Age: 62 Year
  Sex: Female

DRUGS (3)
  1. TECFIDERA [Suspect]
     Active Substance: DIMETHYL FUMARATE
     Indication: MULTIPLE SCLEROSIS
     Route: 048
     Dates: start: 20140805, end: 20140814
  2. TECFIDERA [Suspect]
     Active Substance: DIMETHYL FUMARATE
     Indication: MULTIPLE SCLEROSIS
     Dates: start: 201403
  3. IVIG [Concomitant]
     Active Substance: HUMAN IMMUNOGLOBULIN G
     Route: 042

REACTIONS (6)
  - Muscle spasticity [Unknown]
  - Nausea [Unknown]
  - Influenza [Recovered/Resolved]
  - Intentional underdose [Recovered/Resolved]
  - White blood cell count decreased [Recovered/Resolved]
  - Decreased appetite [Unknown]

NARRATIVE: CASE EVENT DATE: 2014
